FAERS Safety Report 24799554 (Version 1)
Quarter: 2025Q1

REPORT INFORMATION
  Report Type: Spontaneous
  Country: US (occurrence: None)
  Receive Date: 20250101
  Receipt Date: 20250101
  Transmission Date: 20250409
  Serious: Yes (Death)
  Sender: FDA-CTU
  Company Number: None

PATIENT
  Age: 39 Year
  Sex: Female
  Weight: 67.4 kg

DRUGS (2)
  1. PEMBROLIZUMAB [Suspect]
     Active Substance: PEMBROLIZUMAB
     Dates: end: 20241218
  2. MOMETASONE [Concomitant]
     Active Substance: MOMETASONE

REACTIONS (5)
  - Circulatory collapse [None]
  - Ventricular fibrillation [None]
  - Arrhythmia [None]
  - Acute coronary syndrome [None]
  - Electrocardiogram QT prolonged [None]

NARRATIVE: CASE EVENT DATE: 20241221
